FAERS Safety Report 6121356-8 (Version None)
Quarter: 2009Q1

REPORT INFORMATION
  Report Type: 
  Country: None (occurrence: None)
  Receive Date: 20090313
  Receipt Date: 20090313
  Transmission Date: 20090719
  Serious: No
  Sender: FDA-Public Use
  Company Number: None

PATIENT
  Age: 6 Year
  Sex: Male
  Weight: 19.5047 kg

DRUGS (3)
  1. CEFUROXIME 250MG/5ML SUSP 50ML RANBAXY [Suspect]
     Indication: EAR INFECTION
     Dosage: 2ML TWICE DAILY PO
     Route: 048
     Dates: start: 20090311, end: 20090311
  2. CEFUROXIME 250MG/5ML SUSP 50ML RANBAXY [Suspect]
     Indication: SWELLING
     Dosage: 2ML TWICE DAILY PO
     Route: 048
     Dates: start: 20090311, end: 20090311
  3. CEFUROXIME 250MG/5ML SUSP 50ML RANBAXY [Suspect]
     Indication: TONSILLAR DISORDER
     Dosage: 2ML TWICE DAILY PO
     Route: 048
     Dates: start: 20090311, end: 20090311

REACTIONS (2)
  - PRODUCT QUALITY ISSUE [None]
  - VOMITING [None]
